APPROVED DRUG PRODUCT: LEVOTHYROXINE SODIUM
Active Ingredient: LEVOTHYROXINE SODIUM
Strength: 0.2MG
Dosage Form/Route: CAPSULE;ORAL
Application: A211369 | Product #004
Applicant: ANI PHARMACEUTICALS INC
Approved: Nov 9, 2022 | RLD: No | RS: No | Type: DISCN